FAERS Safety Report 21350719 (Version 1)
Quarter: 2022Q3

REPORT INFORMATION
  Report Type: Spontaneous
  Country: CA (occurrence: CA)
  Receive Date: 20220919
  Receipt Date: 20220919
  Transmission Date: 20221026
  Serious: Yes (Hospitalization, Other)
  Sender: FDA-Public Use
  Company Number: CA-PFIZER INC-202201166767

PATIENT
  Age: 79 Year
  Sex: Female

DRUGS (2)
  1. CELECOXIB [Suspect]
     Active Substance: CELECOXIB
  2. CANDESARTAN [Suspect]
     Active Substance: CANDESARTAN

REACTIONS (3)
  - Erosive oesophagitis [Unknown]
  - Upper gastrointestinal haemorrhage [Unknown]
  - Ulcer [Unknown]
